FAERS Safety Report 9298238 (Version 2)
Quarter: 2014Q1

REPORT INFORMATION
  Report Type: Spontaneous
  Country: GB (occurrence: GB)
  Receive Date: 20130520
  Receipt Date: 20140131
  Transmission Date: 20141002
  Serious: Yes (Other)
  Sender: FDA-Public Use
  Company Number: GB-JNJFOC-20130508477

PATIENT
  Age: 33 Year
  Sex: Female

DRUGS (9)
  1. REMICADE [Suspect]
     Indication: PYODERMA GANGRENOSUM
     Dosage: WEEK 2
     Route: 042
     Dates: start: 20121217
  2. REMICADE [Suspect]
     Indication: PYODERMA GANGRENOSUM
     Dosage: WEEK 6
     Route: 042
     Dates: start: 20130114
  3. REMICADE [Suspect]
     Indication: PYODERMA GANGRENOSUM
     Dosage: WEEK 0
     Route: 042
     Dates: start: 20121203
  4. REMICADE [Suspect]
     Indication: PYODERMA GANGRENOSUM
     Dosage: WEEK 14
     Route: 042
     Dates: start: 20130311, end: 20130312
  5. DAPSONE [Concomitant]
     Indication: NEUTROPHILIC DERMATOSIS
     Dosage: ALTERNATE DAYS
     Route: 065
     Dates: start: 20120817
  6. DAPSONE [Concomitant]
     Indication: NEUTROPHILIC DERMATOSIS
     Route: 065
  7. DAPSONE [Concomitant]
     Indication: PYODERMA GANGRENOSUM
     Dosage: ALTERNATE DAYS
     Route: 065
     Dates: start: 20120817
  8. DAPSONE [Concomitant]
     Indication: PYODERMA GANGRENOSUM
     Route: 065
  9. CYCLOSPORINE [Concomitant]
     Route: 065
     Dates: start: 20120910

REACTIONS (4)
  - Dermatosis [Unknown]
  - Serum sickness [Recovering/Resolving]
  - Oral herpes [Recovering/Resolving]
  - Off label use [Unknown]
